FAERS Safety Report 15294044 (Version 1)
Quarter: 2018Q3

REPORT INFORMATION
  Report Type: Spontaneous
  Country: US (occurrence: US)
  Receive Date: 20180820
  Receipt Date: 20180820
  Transmission Date: 20181010
  Serious: No
  Sender: FDA-Public Use
  Company Number: US-ACADIA PHARMACEUTICALS INC.-ACA-2018-008946

PATIENT
  Sex: Male

DRUGS (1)
  1. NUPLAZID [Suspect]
     Active Substance: PIMAVANSERIN TARTRATE
     Indication: DEMENTIA WITH LEWY BODIES
     Dosage: 34 MG, QD
     Route: 065
     Dates: start: 20180120, end: 20180307

REACTIONS (12)
  - Drug ineffective for unapproved indication [Unknown]
  - Tremor [Not Recovered/Not Resolved]
  - Anxiety [Not Recovered/Not Resolved]
  - Agitation [Not Recovered/Not Resolved]
  - Restlessness [Unknown]
  - Amnesia [Unknown]
  - Blood cholesterol increased [Unknown]
  - Constipation [Unknown]
  - Rash [Unknown]
  - Gait disturbance [Unknown]
  - Off label use [Unknown]
  - Nausea [Unknown]
